FAERS Safety Report 12071178 (Version 1)
Quarter: 2016Q1

REPORT INFORMATION
  Report Type: Spontaneous
  Country: PR (occurrence: PR)
  Receive Date: 20160211
  Receipt Date: 20160211
  Transmission Date: 20160526
  Serious: No
  Sender: FDA-Public Use
  Company Number: PR-THE RITEDOSE CORPORATION-2015RIT000143

PATIENT
  Sex: Female
  Weight: 92.97 kg

DRUGS (1)
  1. ALBUTEROL SULFATE INHALATION SOLUTION [Suspect]
     Active Substance: ALBUTEROL SULFATE
     Dosage: UNK
     Route: 055

REACTIONS (1)
  - Drug ineffective [Not Recovered/Not Resolved]
